FAERS Safety Report 4867669-9 (Version None)
Quarter: 2005Q4

REPORT INFORMATION
  Report Type: 
  Country: None (occurrence: None)
  Receive Date: 20051222
  Receipt Date: 20051222
  Transmission Date: 20060501
  Serious: Yes (Hospitalization)
  Sender: FDA-Public Use
  Company Number: None

PATIENT
  Age: 88 Year
  Sex: Female
  Weight: 69 kg

DRUGS (1)
  1. SULFAMETHOXAZOLE + TRIMETHOPRIM [Suspect]
     Indication: UPPER RESPIRATORY TRACT INFECTION
     Dosage: 1 TABLET   TWICE DAILY  PO   (1 DOSE)
     Route: 048

REACTIONS (7)
  - CHRONIC OBSTRUCTIVE PULMONARY DISEASE [None]
  - CONDITION AGGRAVATED [None]
  - DRUG HYPERSENSITIVITY [None]
  - DYSPNOEA [None]
  - ERYTHEMA [None]
  - PRURITUS [None]
  - WHEEZING [None]
